FAERS Safety Report 5650117-9 (Version None)
Quarter: 2008Q1

REPORT INFORMATION
  Report Type: 
  Country: None (occurrence: None)
  Receive Date: 20080131
  Receipt Date: 20071206
  Transmission Date: 20080703
  Serious: No
  Sender: FDA-Public Use
  Company Number: US200712001535

PATIENT
  Age: 64 Year
  Sex: Male
  Weight: 120.6 kg

DRUGS (4)
  1. BYETTA [Suspect]
     Indication: DIABETES MELLITUS
     Dosage: 5 UG, 2/D, SUBCUTANEOUS; 10 UG, 2/D, SUBCUTANEOUS
     Route: 058
     Dates: start: 20070901, end: 20070914
  2. BYETTA [Suspect]
     Indication: DIABETES MELLITUS
     Dosage: 5 UG, 2/D, SUBCUTANEOUS; 10 UG, 2/D, SUBCUTANEOUS
     Route: 058
     Dates: start: 20070915, end: 20071101
  3. HUMALOG [Concomitant]
  4. DRUG USED IN DIABETES [Concomitant]

REACTIONS (6)
  - ASTHENIA [None]
  - GLYCOSYLATED HAEMOGLOBIN INCREASED [None]
  - HEADACHE [None]
  - NAUSEA [None]
  - VOMITING [None]
  - WEIGHT INCREASED [None]
